FAERS Safety Report 6079084-3 (Version None)
Quarter: 2009Q1

REPORT INFORMATION
  Report Type: 
  Country: None (occurrence: None)
  Receive Date: 20090216
  Receipt Date: 20090209
  Transmission Date: 20090719
  Serious: Yes (Other)
  Sender: FDA-Public Use
  Company Number: A0768529A

PATIENT
  Sex: Male

DRUGS (1)
  1. NICORETTE [Suspect]
     Route: 002

REACTIONS (3)
  - INTENTIONAL DRUG MISUSE [None]
  - OSTEOMYELITIS [None]
  - THERAPEUTIC RESPONSE UNEXPECTED [None]
